FAERS Safety Report 24365210 (Version 1)
Quarter: 2024Q3

REPORT INFORMATION
  Report Type: Spontaneous
  Country: US (occurrence: US)
  Receive Date: 20240926
  Receipt Date: 20240926
  Transmission Date: 20241016
  Serious: Yes (Death, Hospitalization, Other)
  Sender: TEVA
  Company Number: US-TEVA-VS-3246225

PATIENT
  Age: 30 Year
  Sex: Male
  Weight: 77.4 kg

DRUGS (1)
  1. CARBOPLATIN [Suspect]
     Active Substance: CARBOPLATIN
     Indication: Neuroendocrine carcinoma
     Route: 065
     Dates: start: 20240612

REACTIONS (9)
  - Septic shock [Fatal]
  - Lactic acidosis [Unknown]
  - Bacterial infection [Unknown]
  - Dyspnoea [Unknown]
  - Diarrhoea [Unknown]
  - Neutropenia [Unknown]
  - Nausea [Unknown]
  - Anaemia [Unknown]
  - Illness [Unknown]

NARRATIVE: CASE EVENT DATE: 20240101
